FAERS Safety Report 21342186 (Version 1)
Quarter: 2022Q3

REPORT INFORMATION
  Report Type: Spontaneous
  Country: JP (occurrence: JP)
  Receive Date: 20220916
  Receipt Date: 20220916
  Transmission Date: 20221027
  Serious: Yes (Other)
  Sender: FDA-Public Use
  Company Number: JP-GILEAD-2022-0595523

PATIENT
  Age: 8 Decade
  Sex: Male

DRUGS (1)
  1. VEKLURY [Suspect]
     Active Substance: REMDESIVIR
     Indication: Coronavirus test positive
     Dosage: UNK
     Route: 065
     Dates: start: 20220826, end: 20220830

REACTIONS (1)
  - COVID-19 pneumonia [Not Recovered/Not Resolved]
